FAERS Safety Report 20148299 (Version 1)
Quarter: 2021Q4

REPORT INFORMATION
  Report Type: Spontaneous
  Country: US (occurrence: US)
  Receive Date: 20211204
  Receipt Date: 20211204
  Transmission Date: 20220303
  Serious: No
  Sender: FDA-Public Use
  Company Number: US-SA-SAC20211129000359

PATIENT
  Age: 74 Year
  Sex: Female
  Weight: 150 kg

DRUGS (1)
  1. LOVENOX [Suspect]
     Active Substance: ENOXAPARIN SODIUM
     Indication: COVID-19 immunisation
     Dosage: INJECTION IN THE LEFT ARM
     Dates: start: 20210808, end: 20210824

REACTIONS (2)
  - Eye infection [Unknown]
  - Alopecia [Unknown]
